FAERS Safety Report 5496965-X (Version None)
Quarter: 2007Q4

REPORT INFORMATION
  Report Type: 
  Country: None (occurrence: None)
  Receive Date: 20071025
  Receipt Date: 20071017
  Transmission Date: 20080405
  Serious: Yes (Hospitalization)
  Sender: FDA-Public Use
  Company Number: B0492206A

PATIENT
  Age: 35 Year
  Sex: Male

DRUGS (7)
  1. NARAMIG [Suspect]
     Indication: HEADACHE
     Dosage: 1TAB VARIABLE DOSE
     Route: 048
     Dates: start: 20001028
  2. ACTIFED JOUR ET NUIT [Suspect]
     Indication: CHRONIC SINUSITIS
     Route: 048
     Dates: start: 19980101, end: 20070101
  3. LYSANXIA [Concomitant]
     Route: 065
  4. HOMEOPATHIC PREPARATION [Concomitant]
     Route: 065
  5. PROPOFOL [Concomitant]
     Dosage: 2TAB TWICE PER DAY
     Route: 048
  6. PARACETAMOL [Concomitant]
     Route: 065
  7. ZOLPIDEM TARTRATE [Concomitant]
     Route: 065

REACTIONS (11)
  - BRAIN OEDEMA [None]
  - CEREBRAL HAEMATOMA [None]
  - CONVULSION [None]
  - DEPRESSION [None]
  - DISTURBANCE IN ATTENTION [None]
  - FATIGUE [None]
  - HAEMORRHAGIC STROKE [None]
  - MEMORY IMPAIRMENT [None]
  - MIGRAINE [None]
  - MOUTH INJURY [None]
  - PARAESTHESIA [None]
